FAERS Safety Report 13400631 (Version 2)
Quarter: 2017Q2

REPORT INFORMATION
  Report Type: Spontaneous
  Country: US (occurrence: US)
  Receive Date: 20170404
  Receipt Date: 20170404
  Transmission Date: 20170830
  Serious: Yes (Hospitalization, Other)
  Sender: FDA-Public Use
  Company Number: US-APOTEX-2017AP009400

PATIENT
  Age: 49 Year
  Sex: Male

DRUGS (1)
  1. FLUCONAZOLE TABLETS [Suspect]
     Active Substance: FLUCONAZOLE
     Indication: FUNGAL INFECTION
     Route: 065

REACTIONS (2)
  - Visual impairment [Not Recovered/Not Resolved]
  - Toxic epidermal necrolysis [Recovered/Resolved with Sequelae]
